FAERS Safety Report 9239251 (Version 2)
Quarter: 2013Q2

REPORT INFORMATION
  Report Type: Spontaneous
  Country: US (occurrence: US)
  Receive Date: 20130417
  Receipt Date: 20130417
  Transmission Date: 20140414
  Serious: Yes (Other)
  Sender: FDA-Public Use
  Company Number: US-RB-034163-11

PATIENT
  Age: 27 Year
  Sex: Female

DRUGS (2)
  1. SUBUTEX TABLETS [Suspect]
     Indication: DRUG DEPENDENCE
     Route: 065
     Dates: start: 20110705
  2. PHENERGAN [Concomitant]
     Indication: PRODUCT USED FOR UNKNOWN INDICATION
     Dosage: DAILY DOSE 25 MG
     Route: 065

REACTIONS (3)
  - Exposure during pregnancy [Recovered/Resolved]
  - Premature delivery [Recovered/Resolved]
  - Caesarean section [None]
